FAERS Safety Report 5371660-6 (Version None)
Quarter: 2007Q2

REPORT INFORMATION
  Report Type: 
  Country: None (occurrence: None)
  Receive Date: 20070627
  Receipt Date: 20070619
  Transmission Date: 20071010
  Serious: Yes (Hospitalization)
  Sender: FDA-Public Use
  Company Number: PHRM2007FR01685

PATIENT
  Age: 17 Year
  Sex: Male

DRUGS (2)
  1. CLOZAPINE [Suspect]
     Indication: PSYCHOTIC DISORDER
     Dosage: 125 MG, QD
     Route: 048
     Dates: start: 20070609
  2. DEPAKOTE [Concomitant]
     Dosage: LOW DOSAGE
     Route: 048

REACTIONS (13)
  - ABDOMINAL PAIN [None]
  - ANOREXIA [None]
  - C-REACTIVE PROTEIN INCREASED [None]
  - GASTROINTESTINAL HYPOMOTILITY [None]
  - GENERAL PHYSICAL HEALTH DETERIORATION [None]
  - HICCUPS [None]
  - HYPERHIDROSIS [None]
  - HYPOKALAEMIA [None]
  - INFLAMMATION [None]
  - LEUKOCYTOSIS [None]
  - NAUSEA [None]
  - SUBILEUS [None]
  - VOMITING [None]
